FAERS Safety Report 4929838-9 (Version None)
Quarter: 2006Q1

REPORT INFORMATION
  Report Type: 
  Country: None (occurrence: None)
  Receive Date: 20060301
  Receipt Date: 20060220
  Transmission Date: 20060701
  Serious: Yes (Hospitalization)
  Sender: FDA-Public Use
  Company Number: US-MERCK-0602USA05196

PATIENT
  Age: 77 Year
  Sex: Male
  Weight: 105 kg

DRUGS (5)
  1. VIOXX [Suspect]
     Indication: ARTHRITIS
     Route: 048
  2. SOTALOL HYDROCHLORIDE [Concomitant]
     Route: 065
  3. NIFEDIPINE [Concomitant]
     Route: 065
  4. LISINOPRIL [Concomitant]
     Route: 065
  5. LOVASTATIN [Concomitant]
     Route: 065

REACTIONS (1)
  - CARDIAC DISORDER [None]
